FAERS Safety Report 13502605 (Version 1)
Quarter: 2017Q2

REPORT INFORMATION
  Report Type: Spontaneous
  Country: US (occurrence: GB)
  Receive Date: 20170502
  Receipt Date: 20170502
  Transmission Date: 20170830
  Serious: Yes (Other)
  Sender: FDA-Public Use
  Company Number: US-SUNOVION-2017SUN001813

PATIENT

DRUGS (2)
  1. GLYCOPYRROLATE. [Suspect]
     Active Substance: GLYCOPYRROLATE
     Indication: COUGH
     Dosage: 44 ?G, UNK
     Route: 055
     Dates: start: 20170406, end: 20170407
  2. AMITRIPTYLINE [Concomitant]
     Active Substance: AMITRIPTYLINE

REACTIONS (4)
  - Heart rate increased [Recovered/Resolved with Sequelae]
  - Headache [Recovered/Resolved]
  - Feeling abnormal [Recovered/Resolved]
  - Heart rate irregular [Recovered/Resolved]
